FAERS Safety Report 14079216 (Version 2)
Quarter: 2018Q1

REPORT INFORMATION
  Report Type: Spontaneous
  Country: US (occurrence: US)
  Receive Date: 20171012
  Receipt Date: 20180302
  Transmission Date: 20180508
  Serious: No
  Sender: FDA-Public Use
  Company Number: US-LEXICON PHARMACEUTICALS, INC-17-1606-00861

PATIENT
  Age: 62 Year
  Sex: Female

DRUGS (9)
  1. VITAMIN D3 [Concomitant]
     Active Substance: CHOLECALCIFEROL
     Route: 048
     Dates: start: 20160316
  2. TELOTRISTAT ETHYL [Suspect]
     Active Substance: TELOTRISTAT ETHYL
     Route: 048
     Dates: start: 20180117
  3. METFORMIN [Concomitant]
     Active Substance: METFORMIN HYDROCHLORIDE
     Route: 048
     Dates: start: 20180124
  4. TAGAMET [Concomitant]
     Active Substance: CIMETIDINE
     Indication: GASTRITIS
     Route: 048
     Dates: start: 20160427
  5. CREON [Concomitant]
     Active Substance: PANCRELIPASE AMYLASE\PANCRELIPASE LIPASE\PANCRELIPASE PROTEASE
     Route: 048
     Dates: start: 20180124
  6. NIACIN. [Concomitant]
     Active Substance: NIACIN
     Route: 048
     Dates: start: 20170605
  7. TELOTRISTAT ETHYL [Suspect]
     Active Substance: TELOTRISTAT ETHYL
     Indication: CARCINOID TUMOUR
     Route: 048
     Dates: start: 20170830, end: 20170915
  8. FISH OIL [Concomitant]
     Active Substance: FISH OIL
     Route: 048
     Dates: start: 20160316
  9. TELOTRISTAT ETHYL [Suspect]
     Active Substance: TELOTRISTAT ETHYL
     Route: 048
     Dates: start: 20171001, end: 20171007

REACTIONS (3)
  - Arthralgia [Unknown]
  - Peripheral swelling [Not Recovered/Not Resolved]
  - Joint swelling [Not Recovered/Not Resolved]

NARRATIVE: CASE EVENT DATE: 2017
